APPROVED DRUG PRODUCT: LEUPROLIDE ACETATE
Active Ingredient: LEUPROLIDE ACETATE
Strength: 14MG/2.8ML (1MG/0.2ML)
Dosage Form/Route: SOLUTION;SUBCUTANEOUS
Application: A215826 | Product #001 | TE Code: AP
Applicant: ZYDUS PHARMACEUTICALS USA INC
Approved: Nov 13, 2025 | RLD: No | RS: No | Type: RX